FAERS Safety Report 7308037-X (Version None)
Quarter: 2011Q1

REPORT INFORMATION
  Report Type: 
  Country: None (occurrence: None)
  Receive Date: 20110223
  Receipt Date: 20100811
  Transmission Date: 20110831
  Serious: Yes (Hospitalization, Other)
  Sender: FDA-Public Use
  Company Number: US-BAYER-200930289NA

PATIENT
  Sex: Female
  Weight: 87 kg

DRUGS (12)
  1. ZYRTEC [Concomitant]
     Dosage: 10 MG (DAILY DOSE), ,
     Dates: start: 20070601
  2. UNCODEABLE ^UNCLASSIFIABLE^ [Concomitant]
     Dosage: 70 MG, UNK
  3. MUCINEX [Concomitant]
  4. INSPRA [Concomitant]
  5. WARFARIN SODIUM [Concomitant]
     Dosage: 1 MG (DAILY DOSE), ,
     Dates: start: 20071001
  6. UNCODEABLE ^UNCLASSIFIABLE^ [Concomitant]
     Dosage: 100 MG, UNK
  7. YASMIN [Suspect]
     Indication: MENORRHAGIA
     Route: 048
     Dates: start: 20070701, end: 20070901
  8. PREDNISONE [Concomitant]
     Dosage: 20 MG (DAILY DOSE), ,
     Dates: start: 20070601
  9. NEXIUM [Concomitant]
     Dosage: 40 MG, UNK
  10. TRIAMCINOLONE [Concomitant]
     Dosage: 0.1 % (DAILY DOSE), ,
     Dates: start: 20070601
  11. NITROGLYCERIN [Concomitant]
     Dosage: 0.4 MG, UNK
  12. UNCODEABLE ^UNCLASSIFIABLE^ [Concomitant]
     Dosage: 25 MG, UNK
     Dates: start: 20091201

REACTIONS (11)
  - PAIN [None]
  - DYSPNOEA EXERTIONAL [None]
  - CHEST DISCOMFORT [None]
  - DYSPNOEA [None]
  - ASTHENIA [None]
  - PULMONARY EMBOLISM [None]
  - DEEP VEIN THROMBOSIS [None]
  - FLUID RETENTION [None]
  - MENTAL DISORDER [None]
  - ABDOMINAL PAIN UPPER [None]
  - RIGHT VENTRICULAR FAILURE [None]
